FAERS Safety Report 10056592 (Version 1)
Quarter: 2014Q2

REPORT INFORMATION
  Report Type: Spontaneous
  Country: US (occurrence: US)
  Receive Date: 20140403
  Receipt Date: 20140403
  Transmission Date: 20141212
  Serious: No
  Sender: FDA-Public Use
  Company Number: US-PFIZER INC-2014094283

PATIENT
  Age: 52 Year
  Sex: Female

DRUGS (2)
  1. XELJANZ [Suspect]
     Indication: RHEUMATOID ARTHRITIS
     Dosage: UNK
     Dates: start: 20130514
  2. XELJANZ [Suspect]
     Dosage: 5 MG, 2X/DAY (FOR FOUR MONTH)
     Dates: end: 20131212

REACTIONS (1)
  - Haematuria [Recovered/Resolved]
